FAERS Safety Report 22194401 (Version 1)
Quarter: 2023Q2

REPORT INFORMATION
  Report Type: Spontaneous
  Country: ES (occurrence: ES)
  Receive Date: 20230411
  Receipt Date: 20230411
  Transmission Date: 20230722
  Serious: Yes (Hospitalization)
  Sender: FDA-Public Use
  Company Number: ES-JNJFOC-20211262336

PATIENT
  Age: 48 Year
  Sex: Female
  Weight: 111.8 kg

DRUGS (3)
  1. ERDAFITINIB [Suspect]
     Active Substance: ERDAFITINIB
     Indication: Neoplasm
     Dosage: MED. KIT 547-4313 591-5107 609-7496
     Route: 048
     Dates: start: 20210104, end: 20210826
  2. TINZAPARIN [Concomitant]
     Active Substance: TINZAPARIN
     Indication: Pulmonary embolism
     Route: 065
  3. TINZAPARIN [Concomitant]
     Active Substance: TINZAPARIN
     Dosage: 16,000 UI
     Route: 065

REACTIONS (1)
  - Pulmonary embolism [Not Recovered/Not Resolved]

NARRATIVE: CASE EVENT DATE: 20210927
